FAERS Safety Report 8369322-6 (Version None)
Quarter: 2012Q2

REPORT INFORMATION
  Report Type: 
  Country: None (occurrence: None)
  Receive Date: 20120518
  Receipt Date: 20120514
  Transmission Date: 20120825
  Serious: Yes (Other)
  Sender: FDA-Public Use
  Company Number: PHHY2012UA040912

PATIENT
  Age: 58 Year

DRUGS (1)
  1. DICLOFENAC SODIUM [Suspect]
     Indication: BACK PAIN
     Dosage: UNK
     Route: 030

REACTIONS (8)
  - CARDIAC DISCOMFORT [None]
  - SCOLIOSIS [None]
  - PALPITATIONS [None]
  - INTERVERTEBRAL DISC PROTRUSION [None]
  - MUSCLE STRAIN [None]
  - OSTEOCHONDROSIS [None]
  - BACK PAIN [None]
  - BLOOD PRESSURE INCREASED [None]
